FAERS Safety Report 8006204-3 (Version None)
Quarter: 2011Q4

REPORT INFORMATION
  Report Type: 
  Country: None (occurrence: None)
  Receive Date: 20111226
  Receipt Date: 20111222
  Transmission Date: 20120403
  Serious: Yes (Death, Hospitalization)
  Sender: FDA-Public Use
  Company Number: PHFR2011GB006919

PATIENT
  Sex: Male

DRUGS (6)
  1. CLOZARIL [Suspect]
     Indication: SCHIZOPHRENIA
     Dosage: 425 MG, DAILY
     Route: 048
     Dates: start: 19970724
  2. CITALOPRAM [Concomitant]
     Indication: DEPRESSION
     Dosage: 20 MG, DAILY
     Route: 048
  3. HYOSCINE HYDROBROMIDE [Concomitant]
     Indication: SALIVARY HYPERSECRETION
     Dosage: 300 MG, DAILY
     Route: 048
  4. SIMVASTATIN [Concomitant]
     Indication: HYPERCHLORAEMIA
     Dosage: 20 MG,DAILY
  5. RAMIPRIL [Concomitant]
     Indication: HYPERTENSION
     Dosage: 2.5 MG, DAILY
     Route: 048
  6. ASPIRIN [Concomitant]
     Dosage: 75 MG, DAILY
     Route: 048

REACTIONS (4)
  - DIZZINESS [None]
  - WEIGHT DECREASED [None]
  - DECREASED APPETITE [None]
  - LUNG NEOPLASM MALIGNANT [None]
